FAERS Safety Report 11975731 (Version 1)
Quarter: 2016Q1

REPORT INFORMATION
  Report Type: Spontaneous
  Country: GB (occurrence: GB)
  Receive Date: 20160129
  Receipt Date: 20160129
  Transmission Date: 20160526
  Serious: Yes (Other)
  Sender: FDA-Public Use
  Company Number: PHHY2016GB006937

PATIENT
  Age: 89 Year
  Sex: Female

DRUGS (2)
  1. CLARITHROMYCIN. [Suspect]
     Active Substance: CLARITHROMYCIN
     Indication: LOWER RESPIRATORY TRACT INFECTION
     Route: 042
     Dates: start: 20151227
  2. BENZYLPENICILLIN [Suspect]
     Active Substance: PENICILLIN G
     Indication: LOWER RESPIRATORY TRACT INFECTION
     Route: 042
     Dates: start: 20151227

REACTIONS (4)
  - Wheezing [Unknown]
  - Malaise [Unknown]
  - Tachycardia [Unknown]
  - Dyspnoea [Unknown]

NARRATIVE: CASE EVENT DATE: 20151227
